FAERS Safety Report 5138366-X (Version None)
Quarter: 2006Q4

REPORT INFORMATION
  Report Type: 
  Country: None (occurrence: None)
  Receive Date: 20061024
  Receipt Date: 20061016
  Transmission Date: 20070319
  Serious: Yes (Other)
  Sender: FDA-Public Use
  Company Number: 2006125821

PATIENT
  Age: 42 Year
  Sex: Female

DRUGS (1)
  1. DRAMAMINE [Suspect]
     Indication: MOTION SICKNESS
     Dosage: 2 TABS WITHIN 6 HOURS, ORAL
     Route: 048
     Dates: start: 20061014, end: 20061014

REACTIONS (1)
  - HALLUCINATION [None]
